FAERS Safety Report 11676760 (Version 1)
Quarter: 2015Q4

REPORT INFORMATION
  Report Type: Spontaneous
  Country: US (occurrence: US)
  Receive Date: 20151027
  Receipt Date: 20151027
  Transmission Date: 20160304
  Serious: No
  Sender: FDA-Public Use
  Company Number: US-ELI_LILLY_AND_COMPANY-US201009005033

PATIENT
  Age: 82 Year
  Sex: Female
  Weight: 38.1 kg

DRUGS (1)
  1. FORTEO [Suspect]
     Active Substance: TERIPARATIDE
     Indication: OSTEOPOROSIS
     Dosage: 20 UG, DAILY (1/D)
     Dates: start: 20100908

REACTIONS (8)
  - Fatigue [Unknown]
  - Disorientation [Unknown]
  - Hypersomnia [Unknown]
  - Injection site injury [Unknown]
  - Somnolence [Unknown]
  - Mental impairment [Unknown]
  - Dizziness [Unknown]
  - Injection site pain [Unknown]

NARRATIVE: CASE EVENT DATE: 201009
